FAERS Safety Report 14505280 (Version 5)
Quarter: 2018Q2

REPORT INFORMATION
  Report Type: Spontaneous
  Country: JP (occurrence: JP)
  Receive Date: 20180208
  Receipt Date: 20180625
  Transmission Date: 20180711
  Serious: Yes (Hospitalization, Other)
  Sender: FDA-Public Use
  Company Number: JP-PFIZER INC-2018054525

PATIENT
  Age: 67 Year
  Sex: Male

DRUGS (30)
  1. RITUXAN [Concomitant]
     Active Substance: RITUXIMAB
     Dosage: 670 MG, 1X/DAY
     Route: 042
     Dates: start: 20160112, end: 20160112
  2. AZULFIDINE EN-TABS [Concomitant]
     Active Substance: SULFASALAZINE
     Indication: RHEUMATOID ARTHRITIS
     Dosage: 500 MG, 2X/DAY
     Route: 048
     Dates: start: 20130620, end: 20170719
  3. CANDESARTAN /01349502/ [Concomitant]
     Active Substance: CANDESARTAN
     Indication: HYPERTENSION
     Dosage: 8 MG, 1X/DAY
     Route: 048
     Dates: start: 20081201, end: 20170718
  4. MAGNESIUM OXIDE. [Concomitant]
     Active Substance: MAGNESIUM OXIDE
     Indication: CONSTIPATION
     Dosage: 330 MG, 3X/DAY
     Route: 048
     Dates: start: 20081214, end: 20160116
  5. MAGNESIUM OXIDE. [Concomitant]
     Active Substance: MAGNESIUM OXIDE
     Dosage: 330 MG, 3X/DAY
     Route: 048
     Dates: end: 20170520
  6. EMEND [Concomitant]
     Active Substance: APREPITANT
     Dosage: 80 MG, 1X/DAY
     Route: 048
     Dates: start: 201601, end: 20160114
  7. VINCRISTINE SULFATE. [Concomitant]
     Active Substance: VINCRISTINE SULFATE
     Indication: CHEMOTHERAPY
     Dosage: UNK
     Dates: end: 2016
  8. METHOTREXATE. [Interacting]
     Active Substance: METHOTREXATE
     Indication: CHEMOTHERAPY
     Dosage: 6000 MG, (3.5 G/M^2)
     Route: 042
  9. RITUXAN [Concomitant]
     Active Substance: RITUXIMAB
     Indication: CHEMOTHERAPY
     Dosage: 670 MG, UNK
  10. RITUXAN [Concomitant]
     Active Substance: RITUXIMAB
     Indication: DIFFUSE LARGE B-CELL LYMPHOMA
     Dosage: 670 MG, 1X/DAY
     Route: 042
     Dates: start: 20160108, end: 20160108
  11. ITRIZOLE [Concomitant]
     Active Substance: ITRACONAZOLE
     Indication: ASPERGILLUS INFECTION
     Dosage: 200 MG, 1X/DAY
     Route: 048
     Dates: start: 20150826, end: 20170207
  12. DIAMOX /00016901/ [Concomitant]
     Active Substance: ACETAZOLAMIDE
     Indication: DRUG THERAPY
     Dosage: 250 MG, 2X/DAY
     Route: 048
     Dates: start: 20160112, end: 20160114
  13. POLYGLOBIN N [Concomitant]
     Indication: HYPOGAMMAGLOBULINAEMIA
     Dosage: 10 G, 1X/DAY
     Route: 042
     Dates: start: 20160107, end: 20160107
  14. POLARAMINE [Concomitant]
     Active Substance: DEXCHLORPHENIRAMINE MALEATE
     Indication: DRUG THERAPY
     Dosage: 5 MG, 1X/DAY
     Route: 042
     Dates: start: 20160108, end: 20160108
  15. METHYLPREDNISOLONE NA SUCCINATE [Concomitant]
     Active Substance: METHYLPREDNISOLONE SODIUM SUCCINATE
     Indication: DRUG THERAPY
     Dosage: 125 MG, 1X/DAY
     Route: 042
     Dates: start: 20160108, end: 20160108
  16. BAKTAR [Concomitant]
     Active Substance: SULFAMETHOXAZOLE\TRIMETHOPRIM
     Dosage: UNK
  17. BIO-THREE [Concomitant]
     Active Substance: HERBALS
     Indication: DIARRHOEA
     Dosage: UNK UNK, THRICE DAILY
     Route: 048
     Dates: start: 20160117, end: 20160228
  18. LEUCOVORIN /00566702/ [Concomitant]
     Active Substance: LEUCOVORIN
     Dosage: UNK
     Dates: start: 20160114
  19. LOPEMIN /00384302/ [Concomitant]
     Active Substance: LOPERAMIDE HYDROCHLORIDE
     Indication: DIARRHOEA
     Dosage: UNK UNK, AS NEEDED
     Route: 065
  20. CELECOX [Suspect]
     Active Substance: CELECOXIB
     Indication: RHEUMATOID ARTHRITIS
     Dosage: 200 MG, 2X/DAY
     Route: 048
     Dates: start: 20151225, end: 20160114
  21. EMEND [Concomitant]
     Active Substance: APREPITANT
     Indication: VOMITING
     Dosage: 125 MG, 1X/DAY
     Route: 048
     Dates: start: 20160112, end: 201601
  22. ALOXI [Concomitant]
     Active Substance: PALONOSETRON HYDROCHLORIDE
     Indication: VOMITING
     Dosage: 0.75 MG, 1X/DAY
     Route: 042
     Dates: start: 20160112, end: 20160112
  23. DEXART [Concomitant]
     Active Substance: DEXAMETHASONE SODIUM PHOSPHATE
     Dosage: 6.6 MG, 1X/DAY
     Dates: start: 20160112, end: 20160113
  24. ARTIST [Concomitant]
     Active Substance: CARVEDILOL
     Indication: HYPERTENSION
     Dosage: 2.5 MG, 2X/DAY
     Route: 048
     Dates: start: 20081209, end: 20170719
  25. VINCRISTINE SULFATE. [Concomitant]
     Active Substance: VINCRISTINE SULFATE
     Indication: DIFFUSE LARGE B-CELL LYMPHOMA
  26. PROCARBAZINE HYDROCHLORIDE [Concomitant]
     Active Substance: PROCARBAZINE HYDROCHLORIDE
     Indication: DIFFUSE LARGE B-CELL LYMPHOMA
     Dosage: UNK
  27. LANSOPRAZOLE. [Concomitant]
     Active Substance: LANSOPRAZOLE
     Indication: GASTROOESOPHAGEAL REFLUX DISEASE
     Dosage: 15 MG, 1X/DAY
     Route: 048
  28. LEUCOVORIN /00566702/ [Concomitant]
     Active Substance: LEUCOVORIN
     Indication: LYMPHOMA
     Dosage: UNK
  29. METHOTREXATE. [Interacting]
     Active Substance: METHOTREXATE
     Indication: DIFFUSE LARGE B-CELL LYMPHOMA
     Dosage: 6000 MG, 1X/DAY
     Route: 042
     Dates: start: 20160112, end: 20160112
  30. ATELEC [Concomitant]
     Active Substance: CILNIDIPINE
     Indication: HYPERTENSION
     Dosage: 10 MG, 1X/DAY
     Route: 048
     Dates: start: 20090827, end: 20170719

REACTIONS (6)
  - Acute kidney injury [Recovering/Resolving]
  - Malaise [Unknown]
  - Bone marrow failure [Recovered/Resolved]
  - Gastrointestinal mucosal disorder [Recovered/Resolved]
  - Drug interaction [Unknown]
  - Liver disorder [Recovered/Resolved]

NARRATIVE: CASE EVENT DATE: 20160114
